FAERS Safety Report 24418592 (Version 2)
Quarter: 2024Q4

REPORT INFORMATION
  Report Type: Spontaneous
  Country: US (occurrence: US)
  Receive Date: 20241009
  Receipt Date: 20241113
  Transmission Date: 20250114
  Serious: No
  Sender: PURDUE
  Company Number: US-PURDUE-USA-2024-0312440

PATIENT

DRUGS (1)
  1. LISDEXAMFETAMINE DIMESYLATE [Suspect]
     Active Substance: LISDEXAMFETAMINE DIMESYLATE
     Indication: Attention deficit hyperactivity disorder
     Dosage: 1 CAPSULE, ONCE A DAY
     Route: 048
     Dates: start: 20240816, end: 20240911

REACTIONS (6)
  - Apathy [Unknown]
  - Depression [Unknown]
  - Bruxism [Unknown]
  - Product substitution issue [Unknown]
  - Therapeutic response decreased [Unknown]
  - Anxiety [Unknown]
